FAERS Safety Report 14271074 (Version 2)
Quarter: 2017Q4

REPORT INFORMATION
  Report Type: Spontaneous
  Country: FR (occurrence: FR)
  Receive Date: 20171211
  Receipt Date: 20171229
  Transmission Date: 20180321
  Serious: Yes (Other)
  Sender: FDA-Public Use
  Company Number: FR-MYLANLABS-2017M1076405

PATIENT
  Sex: Female
  Weight: 70 kg

DRUGS (2)
  1. BUPIVACAINE MYLAN 20 MG/4 ML, INTRARACHIDIENNE [Suspect]
     Active Substance: BUPIVACAINE
     Indication: SPINAL ANAESTHESIA
     Dosage: 15 MG, UNK
     Route: 024
     Dates: start: 20171121, end: 20171121
  2. BUPIVACAINE MYLAN 20 MG/4 ML, INTRARACHIDIENNE [Suspect]
     Active Substance: BUPIVACAINE
     Indication: CAESAREAN SECTION
     Dosage: UNK
     Route: 024

REACTIONS (2)
  - Drug ineffective [Recovered/Resolved]
  - No adverse event [Unknown]

NARRATIVE: CASE EVENT DATE: 20171121
